FAERS Safety Report 10728800 (Version 15)
Quarter: 2016Q4

REPORT INFORMATION
  Report Type: Report from Study
  Country: CA (occurrence: CA)
  Receive Date: 20150122
  Receipt Date: 20161223
  Transmission Date: 20170206
  Serious: Yes (Hospitalization, Other)
  Sender: FDA-Public Use
  Company Number: PHHY2015CA006783

PATIENT
  Age: 58 Year
  Sex: Male

DRUGS (3)
  1. HUMIRA [Concomitant]
     Active Substance: ADALIMUMAB
     Indication: PRODUCT USED FOR UNKNOWN INDICATION
     Dosage: UNK UNK, QW
     Route: 065
  2. SANDOSTATIN LAR DEPOT [Suspect]
     Active Substance: OCTREOTIDE ACETATE
     Indication: SMALL INTESTINE CARCINOMA METASTATIC
     Dosage: 10 MG, QMO (EVERY 4 WEEKS)
     Route: 030
     Dates: start: 20130318
  3. SANDOSTATIN [Suspect]
     Active Substance: OCTREOTIDE ACETATE
     Indication: SMALL INTESTINE CARCINOMA METASTATIC
     Dosage: TID
     Route: 058
     Dates: start: 20130118

REACTIONS (16)
  - Cough [Unknown]
  - Vomiting [Unknown]
  - Intestinal haemorrhage [Unknown]
  - Crohn^s disease [Unknown]
  - Poisoning [Unknown]
  - Faeces discoloured [Unknown]
  - Abdominal pain [Recovering/Resolving]
  - Food intolerance [Unknown]
  - Heart rate decreased [Unknown]
  - Feeling cold [Unknown]
  - Product use issue [Unknown]
  - Blood pressure systolic increased [Unknown]
  - Malaise [Unknown]
  - Injection site pain [Recovered/Resolved]
  - Haemorrhage [Not Recovered/Not Resolved]
  - Nausea [Unknown]

NARRATIVE: CASE EVENT DATE: 201412
